FAERS Safety Report 4726351-9 (Version None)
Quarter: 2005Q3

REPORT INFORMATION
  Report Type: 
  Country: None (occurrence: None)
  Receive Date: 20050725
  Receipt Date: 20050717
  Transmission Date: 20060218
  Serious: Yes (Other)
  Sender: FDA-Public Use
  Company Number: 2003019233

PATIENT
  Age: 82 Year
  Sex: Male

DRUGS (9)
  1. DOXYCYCLINE [Suspect]
     Indication: ILL-DEFINED DISORDER
     Dosage: 100 MG (DAILY); ORAL
     Route: 048
     Dates: start: 20020917, end: 20021001
  2. RIFAMPICIN [Suspect]
     Indication: ILL-DEFINED DISORDER
     Dosage: 600 MG (DAILY); ORAL
     Route: 048
     Dates: start: 20020917, end: 20021001
  3. DILTIAZEM HYDROCHLORIDE [Suspect]
     Indication: ANGINA PECTORIS
     Dosage: 200 MG (DAILY); ORAL
     Route: 048
  4. FUROSEMIDE [Suspect]
     Indication: ILL-DEFINED DISORDER
  5. WARFARIN SODIUM [Suspect]
     Indication: ILL-DEFINED DISORDER
  6. SOTALOL HCL [Suspect]
     Indication: ILL-DEFINED DISORDER
  7. RAMIPRIL [Concomitant]
  8. NICORANDIL [Concomitant]
  9. DIGOXIN [Concomitant]

REACTIONS (2)
  - CHEST PAIN [None]
  - CONDITION AGGRAVATED [None]
